FAERS Safety Report 8311975-2 (Version None)
Quarter: 2012Q2

REPORT INFORMATION
  Report Type: 
  Country: None (occurrence: None)
  Receive Date: 20120425
  Receipt Date: 20120421
  Transmission Date: 20120825
  Serious: No
  Sender: FDA-Public Use
  Company Number: US-BAYER-2012-040203

PATIENT

DRUGS (2)
  1. PARACETAMOL [Concomitant]
  2. ALEVE (CAPLET) [Suspect]
     Dosage: 3
     Route: 048

REACTIONS (1)
  - EUPHORIC MOOD [None]
